FAERS Safety Report 9762638 (Version 1)
Quarter: 2013Q4

REPORT INFORMATION
  Report Type: Spontaneous
  Country: US (occurrence: US)
  Receive Date: 20131216
  Receipt Date: 20131216
  Transmission Date: 20140711
  Serious: No
  Sender: FDA-Public Use
  Company Number: US-BIOGENIDEC-2013BI102603

PATIENT
  Age: 60 Year
  Sex: Female
  Weight: 47 kg

DRUGS (11)
  1. TECFIDERA [Suspect]
     Indication: PRODUCT USED FOR UNKNOWN INDICATION
     Route: 048
  2. CALTRATE [Concomitant]
  3. FOSAMAX [Concomitant]
  4. EFFEXOR [Concomitant]
  5. LASIX [Concomitant]
  6. SYNTHROID [Concomitant]
  7. DIOVAN HCT [Concomitant]
  8. SUMATRIPTAN [Concomitant]
  9. CO Q-10 [Concomitant]
  10. IRON [Concomitant]
  11. INDOCIN [Concomitant]

REACTIONS (1)
  - Flushing [Unknown]
